APPROVED DRUG PRODUCT: PAMIDRONATE DISODIUM
Active Ingredient: PAMIDRONATE DISODIUM
Strength: 30MG/VIAL
Dosage Form/Route: INJECTABLE;INJECTION
Application: A075594 | Product #001
Applicant: AESGEN INC
Approved: May 6, 2002 | RLD: No | RS: No | Type: DISCN